FAERS Safety Report 8373346-2 (Version None)
Quarter: 2012Q2

REPORT INFORMATION
  Report Type: 
  Country: None (occurrence: None)
  Receive Date: 20120521
  Receipt Date: 20120510
  Transmission Date: 20120825
  Serious: No
  Sender: FDA-Public Use
  Company Number: JP-ASTRAZENECA-2012SE22426

PATIENT
  Age: 73 Year
  Sex: Female

DRUGS (6)
  1. LOXONIN [Concomitant]
     Indication: PAIN
     Route: 048
     Dates: start: 20111120
  2. FASLODEX [Suspect]
     Indication: BREAST CANCER
     Dosage: 500 MG
     Route: 030
     Dates: start: 20111202
  3. ZOMETA [Concomitant]
     Indication: METASTASES TO BONE
     Route: 042
     Dates: start: 20090113
  4. URSO 250 [Concomitant]
     Indication: HEPATIC FUNCTION ABNORMAL
     Route: 048
     Dates: start: 20110111
  5. PURSENNID [Concomitant]
     Indication: CONSTIPATION
     Route: 048
     Dates: start: 20111121
  6. MAGMITT [Concomitant]
     Indication: CONSTIPATION
     Route: 048
     Dates: start: 20111121

REACTIONS (1)
  - INJECTION SITE ULCER [None]
